FAERS Safety Report 6809323-X (Version None)
Quarter: 2010Q2

REPORT INFORMATION
  Report Type: 
  Country: None (occurrence: None)
  Receive Date: 20100630
  Receipt Date: 20090721
  Transmission Date: 20101027
  Serious: Yes (Death, Other)
  Sender: FDA-Public Use
  Company Number: US-ASTRAZENECA-2007UW03153

PATIENT
  Age: 17374 Day
  Sex: Male

DRUGS (5)
  1. SEROQUEL [Suspect]
     Route: 048
     Dates: start: 20020719
  2. CELEBREX [Concomitant]
     Dates: start: 20020427
  3. REMERON [Concomitant]
     Dates: start: 20020621
  4. IMIPRAM HCL [Concomitant]
     Dates: start: 20020621
  5. METHYLPHENID [Concomitant]
     Dates: start: 20020728

REACTIONS (6)
  - DEATH [None]
  - DIABETIC COMA [None]
  - DIABETIC KETOACIDOSIS [None]
  - HYPERGLYCAEMIA [None]
  - PANCREATITIS [None]
  - TYPE 2 DIABETES MELLITUS [None]
